FAERS Safety Report 5345370-5 (Version None)
Quarter: 2007Q2

REPORT INFORMATION
  Report Type: 
  Country: None (occurrence: None)
  Receive Date: 20070605
  Receipt Date: 20070525
  Transmission Date: 20071010
  Serious: Yes (Other)
  Sender: FDA-Public Use
  Company Number: PHBS2007BR08834

PATIENT
  Age: 53 Year
  Sex: Female
  Weight: 79 kg

DRUGS (6)
  1. LAMISIL [Suspect]
     Indication: FUNGAL INFECTION
     Dosage: UNK, TID
     Route: 061
  2. MEAVERIN [Concomitant]
     Indication: ANTIPHOSPHOLIPID ANTIBODIES POSITIVE
     Dosage: 10 MG/DAY
     Route: 048
  3. MEAVERIN [Concomitant]
     Dosage: 12.5 MG,PRN
     Route: 048
  4. AZATHIOPRINE [Concomitant]
     Indication: ANTIPHOSPHOLIPID ANTIBODIES POSITIVE
     Dosage: 150 MG/DAY
     Route: 048
  5. FLUCON [Concomitant]
     Indication: FUNGAL INFECTION
     Dosage: 1 CAPSULE/WEEK
  6. TYLENOL [Concomitant]
     Dosage: UNK, PRN

REACTIONS (1)
  - THROMBOSIS [None]
